FAERS Safety Report 21891608 (Version 1)
Quarter: 2023Q1

REPORT INFORMATION
  Report Type: Spontaneous
  Country: US (occurrence: US)
  Receive Date: 20230120
  Receipt Date: 20230120
  Transmission Date: 20230418
  Serious: No
  Sender: FDA-Public Use
  Company Number: None

PATIENT
  Age: 73 Year
  Sex: Female
  Weight: 165 kg

DRUGS (4)
  1. NABUMETONE [Suspect]
     Active Substance: NABUMETONE
     Indication: Osteoarthritis
     Route: 065
  2. NABUMETONE [Suspect]
     Active Substance: NABUMETONE
     Indication: Periprocedural myocardial infarction
  3. NABUMETONE [Suspect]
     Active Substance: NABUMETONE
     Indication: Complex regional pain syndrome
  4. TRAMADOL [Concomitant]
     Active Substance: TRAMADOL
     Indication: Product used for unknown indication
     Route: 065

REACTIONS (6)
  - Tongue discomfort [Recovered/Resolved]
  - Oesophageal pain [Recovered/Resolved]
  - Throat irritation [Recovered/Resolved]
  - Dysphagia [Recovered/Resolved]
  - Dyspepsia [Recovered/Resolved]
  - Product substitution issue [Unknown]
